FAERS Safety Report 18164183 (Version 3)
Quarter: 2023Q2

REPORT INFORMATION
  Report Type: Spontaneous
  Country: US (occurrence: US)
  Receive Date: 20200818
  Receipt Date: 20230418
  Transmission Date: 20230722
  Serious: Yes (Other)
  Sender: FDA-Public Use
  Company Number: US-GILEAD-2020-0490397

PATIENT
  Age: 59 Year
  Sex: Male
  Weight: 95.238 kg

DRUGS (55)
  1. ATRIPLA [Suspect]
     Active Substance: EFAVIRENZ\EMTRICITABINE\TENOFOVIR DISOPROXIL FUMARATE
     Indication: HIV infection
     Dosage: UNK
     Route: 048
     Dates: start: 2006, end: 201408
  2. DESCOVY [Concomitant]
     Active Substance: EMTRICITABINE\TENOFOVIR ALAFENAMIDE FUMARATE
     Indication: HIV infection
  3. EDURANT [Concomitant]
     Active Substance: RILPIVIRINE HYDROCHLORIDE
     Indication: HIV infection
  4. EMTRIVA [Concomitant]
     Active Substance: EMTRICITABINE
     Indication: HIV infection
  5. EPIVIR [Concomitant]
     Active Substance: LAMIVUDINE
     Indication: HIV infection
  6. EPZICOM [Concomitant]
     Active Substance: ABACAVIR SULFATE\LAMIVUDINE
     Indication: HIV infection
  7. GENVOYA [Concomitant]
     Active Substance: COBICISTAT\ELVITEGRAVIR\EMTRICITABINE\TENOFOVIR ALAFENAMIDE FUMARATE
     Indication: HIV infection
  8. INTELENCE [Concomitant]
     Active Substance: ETRAVIRINE
     Indication: HIV infection
  9. ISENTRESS [Concomitant]
     Active Substance: RALTEGRAVIR POTASSIUM
     Indication: HIV infection
  10. RETROVIR [Concomitant]
     Active Substance: ZIDOVUDINE
     Indication: HIV infection
  11. SUSTIVA [Concomitant]
     Active Substance: EFAVIRENZ
     Indication: HIV infection
  12. TIVICAY [Concomitant]
     Active Substance: DOLUTEGRAVIR SODIUM
     Indication: HIV infection
     Dosage: UNK
     Dates: start: 201411, end: 201802
  13. TYBOST [Concomitant]
     Active Substance: COBICISTAT
     Indication: HIV infection
  14. ZIAGEN [Concomitant]
     Active Substance: ABACAVIR SULFATE
     Indication: HIV infection
  15. NORVIR [Concomitant]
     Active Substance: RITONAVIR
     Indication: HIV infection
     Dosage: UNK
     Dates: start: 201811, end: 201903
  16. PREZISTA [Concomitant]
     Active Substance: DARUNAVIR ETHANOLATE
     Indication: HIV infection
     Dosage: UNK
     Dates: start: 201411, end: 201707
  17. PREZISTA [Concomitant]
     Active Substance: DARUNAVIR ETHANOLATE
     Dosage: UNK
     Dates: start: 201811, end: 201903
  18. ADVAIR HFA [Concomitant]
     Active Substance: FLUTICASONE PROPIONATE\SALMETEROL XINAFOATE
     Indication: Asthma
     Dosage: UNK
     Dates: start: 201306, end: 201308
  19. ADVAIR HFA [Concomitant]
     Active Substance: FLUTICASONE PROPIONATE\SALMETEROL XINAFOATE
     Dosage: UNK
     Dates: start: 201408, end: 201410
  20. ADVAIR HFA [Concomitant]
     Active Substance: FLUTICASONE PROPIONATE\SALMETEROL XINAFOATE
     Dosage: UNK
     Dates: start: 201712, end: 201802
  21. ALBUTEROL SULFATE [Concomitant]
     Active Substance: ALBUTEROL SULFATE
     Indication: Asthma
     Dosage: UNK
     Dates: start: 202003, end: 202003
  22. ATORVASTATIN [Concomitant]
     Active Substance: ATORVASTATIN
     Dosage: UNK
     Dates: start: 201802, end: 201901
  23. AZITHROMYCIN [Concomitant]
     Active Substance: AZITHROMYCIN
     Indication: Bacterial infection
     Dosage: UNK
     Dates: start: 201809, end: 201809
  24. CEPHALEXIN [Concomitant]
     Active Substance: CEPHALEXIN
     Indication: Bacterial infection
     Dosage: UNK
     Dates: start: 201707, end: 201708
  25. CIALIS [Concomitant]
     Active Substance: TADALAFIL
     Indication: Erectile dysfunction
     Dosage: UNK
     Dates: start: 201103, end: 201104
  26. CIALIS [Concomitant]
     Active Substance: TADALAFIL
     Dosage: UNK
     Dates: start: 201306, end: 201409
  27. CODEINE\GUAIFENESIN [Concomitant]
     Active Substance: CODEINE\GUAIFENESIN
     Indication: Cough
     Dosage: UNK
     Dates: start: 202003, end: 202005
  28. LEVOCETIRIZINE [Concomitant]
     Active Substance: LEVOCETIRIZINE
     Dosage: UNK
     Dates: start: 201310, end: 201311
  29. LEVOCETIRIZINE [Concomitant]
     Active Substance: LEVOCETIRIZINE
     Dosage: UNK
     Dates: start: 201407, end: 201408
  30. LISINOPRIL [Concomitant]
     Active Substance: LISINOPRIL
     Indication: Hypertension
     Dosage: UNK
     Dates: start: 201111, end: 201202
  31. LISINOPRIL [Concomitant]
     Active Substance: LISINOPRIL
     Dosage: UNK
     Dates: start: 201306, end: 201405
  32. LISINOPRIL [Concomitant]
     Active Substance: LISINOPRIL
     Dosage: UNK
     Dates: start: 201506, end: 201603
  33. LISINOPRIL [Concomitant]
     Active Substance: LISINOPRIL
     Dosage: UNK
     Dates: start: 201609, end: 201803
  34. LOSARTAN POTASSIUM [Concomitant]
     Active Substance: LOSARTAN POTASSIUM
     Indication: Hypertension
     Dosage: UNK
     Dates: start: 201812, end: 201902
  35. LOVAZA [Concomitant]
     Active Substance: OMEGA-3-ACID ETHYL ESTERS
     Dosage: UNK
     Dates: start: 201308, end: 201312
  36. MONTELUKAST [Concomitant]
     Active Substance: MONTELUKAST SODIUM
     Indication: Asthma
     Dosage: UNK
     Dates: start: 201310, end: 201311
  37. MONTELUKAST [Concomitant]
     Active Substance: MONTELUKAST SODIUM
     Dosage: UNK
     Dates: start: 201407, end: 201408
  38. NICOTINE [Concomitant]
     Active Substance: NICOTINE
     Indication: Ex-tobacco user
     Dosage: UNK
     Dates: start: 201810, end: 201812
  39. PARICALCITOL [Concomitant]
     Active Substance: PARICALCITOL
     Dosage: UNK
     Dates: start: 201412, end: 201508
  40. PARICALCITOL [Concomitant]
     Active Substance: PARICALCITOL
     Dosage: UNK
     Dates: start: 201601, end: 201603
  41. PREDNISONE [Concomitant]
     Active Substance: PREDNISONE
     Indication: Inflammation
     Dosage: UNK
     Dates: start: 201611, end: 201611
  42. PREDNISONE [Concomitant]
     Active Substance: PREDNISONE
     Dosage: UNK
     Dates: start: 201705, end: 201706
  43. SILDENAFIL [Concomitant]
     Active Substance: SILDENAFIL
     Indication: Hypertension
     Dosage: UNK
     Dates: start: 201705, end: 201708
  44. SILDENAFIL [Concomitant]
     Active Substance: SILDENAFIL
     Dosage: UNK
     Dates: start: 201806, end: 201807
  45. SODIUM CARBONATE [Concomitant]
     Active Substance: SODIUM CARBONATE
     Indication: Gastrooesophageal reflux disease
     Dosage: UNK
     Dates: start: 201409, end: 201601
  46. SODIUM CARBONATE [Concomitant]
     Active Substance: SODIUM CARBONATE
     Dosage: UNK
     Dates: start: 201708, end: 201801
  47. TESTOSTERONE [Concomitant]
     Active Substance: TESTOSTERONE
     Indication: Erectile dysfunction
     Dosage: UNK
     Dates: start: 201806, end: 201807
  48. VASCEPA [Concomitant]
     Active Substance: ICOSAPENT ETHYL
     Indication: Prophylaxis
     Dosage: UNK
     Dates: start: 201810, end: 201901
  49. VITAMIN D2 [Concomitant]
     Active Substance: ERGOCALCIFEROL
     Indication: Hypovitaminosis
     Dosage: UNK
     Dates: start: 201804, end: 201804
  50. VITAMIN D2 [Concomitant]
     Active Substance: ERGOCALCIFEROL
     Dosage: UNK
     Dates: start: 201806, end: 201810
  51. VENTOLIN [Concomitant]
     Active Substance: ALBUTEROL SULFATE
  52. DOCONEXENT\ICOSAPENT [Concomitant]
     Active Substance: DOCONEXENT\ICOSAPENT
  53. AMOXICILLIN\CLAVULANIC ACID [Concomitant]
     Active Substance: AMOXICILLIN\CLAVULANIC ACID
  54. LORAZEPAM [Concomitant]
     Active Substance: LORAZEPAM
  55. METHYLPREDNISOLONE [Concomitant]
     Active Substance: METHYLPREDNISOLONE

REACTIONS (9)
  - Chronic kidney disease [Not Recovered/Not Resolved]
  - Renal tubular acidosis [Unknown]
  - Chronic kidney disease-mineral and bone disorder [Unknown]
  - Anhedonia [Unknown]
  - Emotional distress [Unknown]
  - Anxiety [Unknown]
  - Pain [Unknown]
  - Decreased activity [Not Recovered/Not Resolved]
  - Blood creatinine increased [Not Recovered/Not Resolved]

NARRATIVE: CASE EVENT DATE: 20140101
